FAERS Safety Report 4458091-8 (Version None)
Quarter: 2004Q3

REPORT INFORMATION
  Report Type: 
  Country: None (occurrence: None)
  Receive Date: 20040922
  Receipt Date: 20040914
  Transmission Date: 20050211
  Serious: Yes (Hospitalization)
  Sender: FDA-Public Use
  Company Number: 2004-09-0669

PATIENT
  Age: 21 Year
  Sex: Female

DRUGS (2)
  1. AERIUS (DESLORATADINE) 'LIKE CLARINEX' [Suspect]
     Indication: HYPERSENSITIVITY
     Dates: end: 20040601
  2. SERETIDE (SALMETEROL XINAFOATE/FLUTICASONE PROPIONAT [Suspect]

REACTIONS (2)
  - HEPATITIS [None]
  - HEPATITIS INFECTIOUS [None]
